FAERS Safety Report 4726680-9 (Version None)
Quarter: 2005Q3

REPORT INFORMATION
  Report Type: 
  Country: None (occurrence: None)
  Receive Date: 20050727
  Receipt Date: 20050620
  Transmission Date: 20060218
  Serious: Yes (Death)
  Sender: FDA-Public Use
  Company Number: MY-MERCK-0506MYS00015

PATIENT
  Age: 53 Year
  Sex: Male

DRUGS (3)
  1. PRIMAXIN [Suspect]
     Indication: SEPSIS
     Route: 041
     Dates: start: 20050507, end: 20050501
  2. PRIMAXIN [Suspect]
     Route: 041
     Dates: start: 20050501, end: 20050513
  3. CEFOPERAZONE SODIUM AND SULBACTAM SODIUM [Concomitant]
     Indication: PERITONITIS
     Route: 065
     Dates: start: 20050503, end: 20050507

REACTIONS (4)
  - BLISTER [None]
  - MULTI-ORGAN FAILURE [None]
  - RASH [None]
  - SEPSIS [None]
